FAERS Safety Report 14773803 (Version 4)
Quarter: 2019Q1

REPORT INFORMATION
  Report Type: Spontaneous
  Country: US (occurrence: US)
  Receive Date: 20180418
  Receipt Date: 20190223
  Transmission Date: 20190417
  Serious: Yes (Other)
  Sender: FDA-Public Use
  Company Number: US-ASTRAZENECA-2018SE48870

PATIENT
  Age: 20250 Day
  Sex: Female
  Weight: 108 kg

DRUGS (29)
  1. ASPIRIN. [Concomitant]
     Active Substance: ASPIRIN
     Dates: start: 20140307
  2. SERTRALINE [Concomitant]
     Active Substance: SERTRALINE HYDROCHLORIDE
     Dates: start: 20160331
  3. METOPROLOL TARTRATE. [Concomitant]
     Active Substance: METOPROLOL TARTRATE
     Dates: start: 20150331
  4. MONTELUKAST [Concomitant]
     Active Substance: MONTELUKAST SODIUM
     Dates: start: 20161025
  5. FUROSEMIDE. [Concomitant]
     Active Substance: FUROSEMIDE
     Dates: start: 20161207
  6. NEXIUM [Suspect]
     Active Substance: ESOMEPRAZOLE MAGNESIUM
     Route: 048
     Dates: start: 198909, end: 201712
  7. PRILOSEC OTC [Suspect]
     Active Substance: OMEPRAZOLE MAGNESIUM
     Route: 048
     Dates: start: 198909, end: 201712
  8. FERROUS SULFATE. [Concomitant]
     Active Substance: FERROUS SULFATE
     Dates: start: 20160331
  9. PROTONIX [Suspect]
     Active Substance: PANTOPRAZOLE SODIUM
     Route: 065
     Dates: start: 198909, end: 201712
  10. BACLOFEN. [Concomitant]
     Active Substance: BACLOFEN
     Dates: start: 20140324
  11. LEVOFLOXACIN. [Concomitant]
     Active Substance: LEVOFLOXACIN
     Dates: start: 20150331
  12. PREVACID [Suspect]
     Active Substance: LANSOPRAZOLE
     Route: 065
     Dates: start: 198909, end: 201712
  13. PREVACID [Suspect]
     Active Substance: LANSOPRAZOLE
     Route: 065
     Dates: start: 20081003, end: 20081103
  14. ATORVASTATIN [Concomitant]
     Active Substance: ATORVASTATIN
     Dates: start: 20140324
  15. TRAMADOL HYDROCHLORIDE. [Concomitant]
     Active Substance: TRAMADOL HYDROCHLORIDE
     Dates: start: 20140325
  16. TRADJENTA [Concomitant]
     Active Substance: LINAGLIPTIN
     Dates: start: 20150331
  17. PRILOSEC [Suspect]
     Active Substance: OMEPRAZOLE MAGNESIUM
     Route: 048
     Dates: start: 198909, end: 201712
  18. SERTRALINE [Concomitant]
     Active Substance: SERTRALINE HYDROCHLORIDE
     Dates: start: 20140324
  19. GABAPENTIN. [Concomitant]
     Active Substance: GABAPENTIN
     Dates: start: 20140324
  20. ATORVASTATIN [Concomitant]
     Active Substance: ATORVASTATIN
     Dates: start: 20161104
  21. DEXILANT [Suspect]
     Active Substance: DEXLANSOPRAZOLE
     Route: 065
     Dates: start: 198909, end: 201712
  22. PREVACID 24 HR [Suspect]
     Active Substance: LANSOPRAZOLE
     Route: 065
     Dates: start: 198909, end: 201712
  23. AMLODIPINE BESYLATE. [Concomitant]
     Active Substance: AMLODIPINE BESYLATE
     Dates: start: 20140324
  24. CLONIDINE. [Concomitant]
     Active Substance: CLONIDINE
     Dates: start: 20151103
  25. IBUPROFEN. [Concomitant]
     Active Substance: IBUPROFEN
     Dosage: 600.0MG AS REQUIRED
     Dates: start: 20151013
  26. NEXIUM 24HR [Suspect]
     Active Substance: ESOMEPRAZOLE MAGNESIUM
     Route: 048
     Dates: start: 198909, end: 201712
  27. PROTONIX [Suspect]
     Active Substance: PANTOPRAZOLE SODIUM
     Dosage: GENERIC, 40 MG
     Route: 048
     Dates: start: 20140307
  28. HYDROCHLOROTHIAZIDE. [Concomitant]
     Active Substance: HYDROCHLOROTHIAZIDE
     Dates: start: 20140324
  29. GEMFIBROZIL. [Concomitant]
     Active Substance: GEMFIBROZIL
     Dates: start: 20150331

REACTIONS (6)
  - Renal injury [Unknown]
  - Hyperparathyroidism secondary [Unknown]
  - Acute kidney injury [Unknown]
  - End stage renal disease [Unknown]
  - Nephrogenic anaemia [Unknown]
  - Chronic kidney disease [Unknown]

NARRATIVE: CASE EVENT DATE: 20161207
